FAERS Safety Report 7907837-2 (Version None)
Quarter: 2011Q4

REPORT INFORMATION
  Report Type: 
  Country: None (occurrence: None)
  Receive Date: 20111110
  Receipt Date: 20111108
  Transmission Date: 20120403
  Serious: No
  Sender: FDA-Public Use
  Company Number: US-PFIZER INC-2011231299

PATIENT
  Age: 9 Year
  Sex: Male

DRUGS (1)
  1. IBUPROFEN (ADVIL) [Suspect]
     Indication: ARTHRITIS
     Dosage: 200 MG, 3X/DAY
     Dates: start: 20110924, end: 20110901

REACTIONS (3)
  - DRUG ADMINISTRATION ERROR [None]
  - PRURITUS [None]
  - RASH GENERALISED [None]
